FAERS Safety Report 25426071 (Version 1)
Quarter: 2025Q2

REPORT INFORMATION
  Report Type: Spontaneous
  Country: PL (occurrence: PL)
  Receive Date: 20250612
  Receipt Date: 20250612
  Transmission Date: 20250716
  Serious: Yes (Other)
  Sender: TEVA
  Company Number: None

PATIENT
  Age: 73 Year
  Sex: Female
  Weight: 76 kg

DRUGS (2)
  1. PERINDOPRIL [Suspect]
     Active Substance: PERINDOPRIL
     Indication: Toxicity to various agents
     Route: 048
     Dates: start: 20210322, end: 20210322
  2. INDAPAMIDE [Suspect]
     Active Substance: INDAPAMIDE
     Indication: Toxicity to various agents
     Route: 048
     Dates: start: 20210322, end: 20210322

REACTIONS (2)
  - Suicide attempt [Recovering/Resolving]
  - Toxicity to various agents [Recovering/Resolving]

NARRATIVE: CASE EVENT DATE: 20210322
